FAERS Safety Report 17345980 (Version 2)
Quarter: 2020Q1

REPORT INFORMATION
  Report Type: Spontaneous
  Country: US (occurrence: US)
  Receive Date: 20200129
  Receipt Date: 20200207
  Transmission Date: 20200409
  Serious: Yes (Hospitalization)
  Sender: FDA-Public Use
  Company Number: US-CELGENEUS-USA-20200110008

PATIENT
  Age: 67 Year
  Sex: Female
  Weight: 72.4 kg

DRUGS (3)
  1. POMALYST [Suspect]
     Active Substance: POMALIDOMIDE
     Indication: CHRONIC LYMPHOCYTIC LEUKAEMIA
     Dosage: 2 MILLIGRAM
     Route: 048
     Dates: start: 20190710, end: 20200123
  2. EVEROLIMUS. [Suspect]
     Active Substance: EVEROLIMUS
     Indication: CHRONIC LYMPHOCYTIC LEUKAEMIA
     Dosage: 5 MILLIGRAM
     Route: 048
     Dates: start: 20190710, end: 20200123
  3. DTRMWXHS-12. [Concomitant]
     Active Substance: DTRMWXHS-12
     Indication: CHRONIC LYMPHOCYTIC LEUKAEMIA
     Dosage: 200 MILLIGRAM
     Route: 065
     Dates: start: 20190710, end: 20200123

REACTIONS (1)
  - Febrile neutropenia [Not Recovered/Not Resolved]

NARRATIVE: CASE EVENT DATE: 20200123
